FAERS Safety Report 7660101-1 (Version None)
Quarter: 2011Q3

REPORT INFORMATION
  Report Type: 
  Country: None (occurrence: None)
  Receive Date: 20110805
  Receipt Date: 20110725
  Transmission Date: 20111222
  Serious: Yes (Hospitalization, Other)
  Sender: FDA-Public Use
  Company Number: PHHY2011CA49555

PATIENT
  Sex: Male

DRUGS (9)
  1. FUROSEMID ^DAK^ [Concomitant]
     Dosage: UNK UKN, UNK
  2. WARFARIN SODIUM [Concomitant]
     Dosage: UNK UKN, UNK
  3. AMLODIPINE [Concomitant]
     Dosage: UNK UKN, UNK
  4. HYDROXYZINE HCL [Concomitant]
     Dosage: UNK UKN, UNK
  5. ALLOPURINOL [Concomitant]
     Dosage: UNK UKN, UNK
  6. SANDOSTATIN LAR [Suspect]
     Indication: METASTATIC CARCINOID TUMOUR
     Dosage: 60 MG, EVERY 2 WEEKS
     Route: 030
     Dates: start: 20041124
  7. ZYLOPRIM [Concomitant]
     Dosage: UNK UKN, UNK
  8. FLOVENT [Concomitant]
     Dosage: UNK UKN, UNK
  9. AFINITOR [Suspect]
     Indication: METASTATIC CARCINOID TUMOUR
     Dosage: 5 MG, EVERY DAY
     Route: 048
     Dates: start: 20110516, end: 20110520

REACTIONS (12)
  - DECREASED APPETITE [None]
  - DIVERTICULITIS [None]
  - NEOPLASM MALIGNANT [None]
  - DIARRHOEA [None]
  - STOMATITIS [None]
  - WEIGHT DECREASED [None]
  - FATIGUE [None]
  - ABDOMINAL PAIN [None]
  - DYSGEUSIA [None]
  - CHEILITIS [None]
  - NEOPLASM PROGRESSION [None]
  - ASTHENIA [None]
